FAERS Safety Report 12901239 (Version 1)
Quarter: 2016Q4

REPORT INFORMATION
  Report Type: Spontaneous
  Country: CH (occurrence: CH)
  Receive Date: 20161101
  Receipt Date: 20161101
  Transmission Date: 20170207
  Serious: Yes (Other)
  Sender: FDA-Public Use
  Company Number: CH-PFIZER INC-2016488260

PATIENT
  Age: 84 Year
  Sex: Male

DRUGS (14)
  1. LYRICA [Concomitant]
     Active Substance: PREGABALIN
     Dosage: UNK
  2. ERTAPENEM [Suspect]
     Active Substance: ERTAPENEM
     Dosage: UNK
     Dates: start: 20160904, end: 20160914
  3. TEMESTA [Suspect]
     Active Substance: LORAZEPAM
     Dosage: 0.5 MG, SINGLE
     Route: 048
     Dates: start: 20160917, end: 20160917
  4. PURSANA [Concomitant]
     Active Substance: FIG FRUIT OIL\SORBITOL
     Dosage: UNK
  5. XARELTO [Concomitant]
     Active Substance: RIVAROXABAN
     Dosage: UNK
  6. MORPHINE [Interacting]
     Active Substance: MORPHINE
     Dosage: 5 MG, EVERY 4 HRS
     Route: 048
     Dates: start: 20160904, end: 20160914
  7. ENALAPRIL [Concomitant]
     Active Substance: ENALAPRIL
     Dosage: UNK
  8. LAXOBERON [Concomitant]
     Active Substance: SODIUM PICOSULFATE
     Dosage: UNK
  9. AVODART [Concomitant]
     Active Substance: DUTASTERIDE
     Dosage: UNK
     Route: 048
  10. AMLODIPIN /00972401/ [Concomitant]
     Active Substance: AMLODIPINE BESYLATE
     Dosage: UNK
  11. DAFALGAN [Concomitant]
     Active Substance: ACETAMINOPHEN
     Dosage: UNK
     Route: 048
  12. AMOXICILLIN TRIHYDRATE W/CLAVULANIC ACID [Interacting]
     Active Substance: AMOXICILLIN\CLAVULANIC ACID
     Dosage: UNK
     Route: 041
     Dates: start: 20160915, end: 20160919
  13. MORPHINE [Interacting]
     Active Substance: MORPHINE
     Dosage: 5 MG, 4X/DAY
     Route: 048
     Dates: start: 20160915, end: 20160917
  14. REMERON [Interacting]
     Active Substance: MIRTAZAPINE
     Dosage: 1 DF, 1X/DAY

REACTIONS (2)
  - Drug interaction [Recovered/Resolved]
  - Confusional state [Recovered/Resolved]

NARRATIVE: CASE EVENT DATE: 20160918
